FAERS Safety Report 4950116-6 (Version None)
Quarter: 2006Q1

REPORT INFORMATION
  Report Type: 
  Country: None (occurrence: None)
  Receive Date: 20060320
  Receipt Date: 20060320
  Transmission Date: 20060701
  Serious: Yes (Life-Threatening, Hospitalization)
  Sender: FDA-Public Use
  Company Number: None

PATIENT
  Age: 54 Year
  Sex: Male

DRUGS (3)
  1. XELODA [Suspect]
     Indication: PANCREATIC CARCINOMA METASTATIC
     Dosage: 1500 MG/M2/DAY  DAILY  PO
     Route: 048
     Dates: start: 20060225, end: 20060310
  2. GEMZAR [Suspect]
     Dosage: 750 MG/M2    WEEKLY    IV DRIP
     Route: 041
     Dates: start: 20060228, end: 20060307
  3. TAXOTERE [Suspect]
     Dosage: 30MG/M2  WEEKLY   IV DRIP
     Route: 041
     Dates: start: 20060228, end: 20060307

REACTIONS (2)
  - FEBRILE NEUTROPENIA [None]
  - SEPSIS [None]
